FAERS Safety Report 8250086-1 (Version None)
Quarter: 2012Q1

REPORT INFORMATION
  Report Type: 
  Country: None (occurrence: None)
  Receive Date: 20120319
  Receipt Date: 20090918
  Transmission Date: 20120608
  Serious: Yes (Hospitalization)
  Sender: FDA-Public Use
  Company Number: PHEH2009US11288

PATIENT
  Age: 28 Year
  Sex: Male
  Weight: 113.4 kg

DRUGS (1)
  1. TEKTURNA HCT [Suspect]
     Indication: HYPERTENSION
     Dosage: 300/12.5 MG, QD, ORAL
     Route: 048
     Dates: start: 20090701, end: 20090901

REACTIONS (1)
  - RENAL FAILURE [None]
